FAERS Safety Report 5080704-0 (Version None)
Quarter: 2006Q3

REPORT INFORMATION
  Report Type: 
  Country: None (occurrence: None)
  Receive Date: 20060809
  Receipt Date: 20060728
  Transmission Date: 20061208
  Serious: Yes (Other)
  Sender: FDA-Public Use
  Company Number: CHNY2006JP02265

PATIENT
  Sex: Male

DRUGS (1)
  1. NICOTINE [Suspect]
     Dosage: TRANSDERMAL
     Route: 062

REACTIONS (1)
  - STEREOTYPIC MOVEMENT DISORDER [None]
